FAERS Safety Report 6850344-9 (Version None)
Quarter: 2010Q3

REPORT INFORMATION
  Report Type: 
  Country: None (occurrence: None)
  Receive Date: 20100716
  Receipt Date: 20100707
  Transmission Date: 20110219
  Serious: Yes (Other)
  Sender: FDA-Public Use
  Company Number: BR-ABBOTT-09P-020-0607972-00

PATIENT
  Sex: Female
  Weight: 74 kg

DRUGS (15)
  1. HUMIRA [Suspect]
     Indication: RHEUMATOID ARTHRITIS
     Route: 058
     Dates: start: 20050218, end: 20090101
  2. HUMIRA [Suspect]
  3. METHOTREXATE [Concomitant]
     Indication: RHEUMATOID ARTHRITIS
     Route: 048
  4. METHOTREXATE [Concomitant]
     Indication: INFECTION
     Route: 048
  5. FOLIC ACID [Concomitant]
     Indication: RHEUMATOID ARTHRITIS
     Route: 048
  6. FOLIC ACID [Concomitant]
     Indication: VITAMIN SUPPLEMENTATION
     Route: 048
  7. FOLIC ACID [Concomitant]
  8. NAPROXEN SODIUM [Concomitant]
     Indication: ANTIINFLAMMATORY THERAPY
     Route: 048
  9. CELECOXIB [Concomitant]
     Indication: PAIN
     Route: 048
  10. DOLAMIN [Concomitant]
     Indication: PAIN
     Route: 048
  11. PREDNISONE [Concomitant]
     Indication: PAIN
     Route: 048
  12. PURAN T4 [Concomitant]
     Indication: HYPERTHYROIDISM
     Route: 048
     Dates: start: 20050101
  13. PURAN T4 [Concomitant]
     Indication: THYROID DISORDER
  14. MESACOL [Concomitant]
     Indication: COLITIS
     Route: 048
  15. AMITRIPTYLINE HYDROCHLORIDE [Concomitant]
     Indication: BLOOD PRESSURE
     Route: 048

REACTIONS (21)
  - ALOPECIA [None]
  - APHTHOUS STOMATITIS [None]
  - APPLICATION SITE ERYTHEMA [None]
  - BLOOD PRESSURE INCREASED [None]
  - CATARACT [None]
  - CHEILITIS [None]
  - COLITIS [None]
  - FEELING COLD [None]
  - GASTRITIS [None]
  - GINGIVAL DISORDER [None]
  - GINGIVITIS [None]
  - INFLAMMATION [None]
  - INFLUENZA [None]
  - OEDEMA PERIPHERAL [None]
  - ONYCHOCLASIS [None]
  - ONYCHOMYCOSIS [None]
  - ORAL DISORDER [None]
  - PAIN IN EXTREMITY [None]
  - SKIN DISCOLOURATION [None]
  - TINEA PEDIS [None]
  - TOOTH DISORDER [None]
